FAERS Safety Report 13017162 (Version 2)
Quarter: 2017Q1

REPORT INFORMATION
  Report Type: Spontaneous
  Country: AT (occurrence: AT)
  Receive Date: 20161212
  Receipt Date: 20170104
  Transmission Date: 20170428
  Serious: Yes (Hospitalization, Other)
  Sender: FDA-Public Use
  Company Number: AT-TEVA-717001ISR

PATIENT
  Age: 51 Year
  Sex: Male
  Weight: 72 kg

DRUGS (2)
  1. FOSTER [Concomitant]
     Active Substance: BECLOMETHASONE\FORMOTEROL
     Dosage: 6 DOSAGE FORMS DAILY; 2-2-2 (2 PUFFS IN THE MORNING, NOON AND EVENING)
     Route: 055
  2. CINQAERO 10 MG/ML CONCENTRATE FOR SOLUTION FOR INFUSION [Suspect]
     Active Substance: RESLIZUMAB
     Dosage: ADMINISTERED DOSE: 5 ML
     Route: 042
     Dates: start: 20161125, end: 20161125

REACTIONS (2)
  - Anaphylactoid reaction [Recovered/Resolved]
  - Urticaria [Recovered/Resolved]

NARRATIVE: CASE EVENT DATE: 20161125
